FAERS Safety Report 4289344-4 (Version None)
Quarter: 2004Q1

REPORT INFORMATION
  Report Type: 
  Country: None (occurrence: None)
  Receive Date: 20040203
  Receipt Date: 20030721
  Transmission Date: 20041129
  Serious: Yes (Other)
  Sender: FDA-Public Use
  Company Number: 200321053BWH

PATIENT
  Age: 61 Year
  Sex: Female
  Weight: 53.0709 kg

DRUGS (2)
  1. AVELOX [Suspect]
     Indication: SINUSITIS
     Dosage: 400 MG, ONCE, ORAL
     Route: 048
     Dates: start: 20030718
  2. DOXYCYCLINE [Concomitant]

REACTIONS (7)
  - CHEST DISCOMFORT [None]
  - DIARRHOEA [None]
  - EAR CONGESTION [None]
  - EYE SWELLING [None]
  - HYPERSENSITIVITY [None]
  - NASAL CONGESTION [None]
  - SWOLLEN TONGUE [None]
